FAERS Safety Report 5232342-4 (Version None)
Quarter: 2007Q1

REPORT INFORMATION
  Report Type: 
  Country: None (occurrence: None)
  Receive Date: 20070207
  Receipt Date: 20070125
  Transmission Date: 20070707
  Serious: Yes (Other)
  Sender: FDA-Public Use
  Company Number: FRWYE314624JAN07

PATIENT
  Age: 65 Year
  Sex: Female

DRUGS (1)
  1. ENBREL [Suspect]
     Indication: DRUG USE FOR UNKNOWN INDICATION
     Dosage: UNKNOWN
     Route: 058
     Dates: start: 20050525, end: 20061226

REACTIONS (4)
  - BREAST CANCER METASTATIC [None]
  - GAMMOPATHY [None]
  - LIGHT CHAIN ANALYSIS INCREASED [None]
  - LIGHT CHAIN DISEASE [None]
